FAERS Safety Report 13673544 (Version 1)
Quarter: 2017Q2

REPORT INFORMATION
  Report Type: Spontaneous
  Country: US (occurrence: US)
  Receive Date: 20170621
  Receipt Date: 20170621
  Transmission Date: 20170830
  Serious: No
  Sender: FDA-Public Use
  Company Number: US-TEVA-696378USA

PATIENT
  Age: 4 Year
  Sex: Male
  Weight: 18.16 kg

DRUGS (1)
  1. HYDROCORTISONE. [Suspect]
     Active Substance: HYDROCORTISONE
     Indication: PRURITUS
     Dosage: 1%
     Route: 061
     Dates: end: 2016

REACTIONS (3)
  - Pain [Recovered/Resolved]
  - Drug ineffective [Unknown]
  - Impaired healing [Recovered/Resolved]

NARRATIVE: CASE EVENT DATE: 20160819
